FAERS Safety Report 5058488-1 (Version None)
Quarter: 2006Q3

REPORT INFORMATION
  Report Type: 
  Country: None (occurrence: None)
  Receive Date: 20060721
  Receipt Date: 20060711
  Transmission Date: 20061208
  Serious: Yes (Hospitalization, Other)
  Sender: FDA-Public Use
  Company Number: US-JNJFOC-20060702167

PATIENT
  Sex: Female

DRUGS (8)
  1. REMICADE [Suspect]
     Indication: CROHN'S DISEASE
     Route: 042
  2. REMICADE [Suspect]
     Indication: RHEUMATOID ARTHRITIS
     Route: 042
  3. PREDNISONE [Concomitant]
     Indication: CROHN'S DISEASE
  4. ASACOL [Concomitant]
  5. AXID [Concomitant]
  6. DIAZEPAM [Concomitant]
  7. PAXIL [Concomitant]
  8. B-12 [Concomitant]

REACTIONS (4)
  - CELLULITIS [None]
  - FALL [None]
  - LIMB INJURY [None]
  - PNEUMONIA [None]
